FAERS Safety Report 17147742 (Version 1)
Quarter: 2019Q4

REPORT INFORMATION
  Report Type: Spontaneous
  Country: MY (occurrence: MY)
  Receive Date: 20191212
  Receipt Date: 20191212
  Transmission Date: 20200122
  Serious: Yes (Other)
  Sender: FDA-Public Use
  Company Number: MY-MYLANLABS-2019M1123132

PATIENT
  Age: 64 Year
  Sex: Male

DRUGS (1)
  1. FONDAPARINUX [Suspect]
     Active Substance: FONDAPARINUX
     Indication: ACUTE MYOCARDIAL INFARCTION
     Dosage: 2.5 MILLIGRAM, QD
     Route: 058

REACTIONS (2)
  - Rash maculo-papular [Recovered/Resolved]
  - Periorbital swelling [Recovered/Resolved]
